FAERS Safety Report 5714457-7 (Version None)
Quarter: 2008Q2

REPORT INFORMATION
  Report Type: 
  Country: None (occurrence: None)
  Receive Date: 20080423
  Receipt Date: 20080408
  Transmission Date: 20081010
  Serious: Yes (Hospitalization)
  Sender: FDA-Public Use
  Company Number: GB-AMGEN-UK274292

PATIENT
  Age: 52 Year
  Sex: Female

DRUGS (6)
  1. NEUPOGEN [Suspect]
     Indication: CHEMOTHERAPY
     Route: 065
  2. CYTARABINE [Suspect]
     Route: 065
  3. FLUDARABINE PHOSPHATE [Suspect]
     Route: 065
  4. AMSACRINE [Concomitant]
     Route: 065
  5. ETOPOSIDE [Concomitant]
     Route: 065
  6. MITOXANTRONE [Concomitant]
     Route: 065

REACTIONS (2)
  - NEUTROPENIA [None]
  - SINUSITIS FUNGAL [None]
